FAERS Safety Report 22341130 (Version 1)
Quarter: 2023Q2

REPORT INFORMATION
  Report Type: Report from Study
  Country: CO (occurrence: CO)
  Receive Date: 20230518
  Receipt Date: 20230518
  Transmission Date: 20230722
  Serious: Yes (Disabling)
  Sender: FDA-Public Use
  Company Number: CO-APIL-2314285US

PATIENT
  Sex: Female

DRUGS (3)
  1. BOTULINUM TOXIN TYPE A [Suspect]
     Active Substance: BOTULINUM TOXIN TYPE A
     Indication: Migraine
     Dosage: UNK, SINGLE
     Dates: start: 202205, end: 202205
  2. HUMIRA [Suspect]
     Active Substance: ADALIMUMAB
     Indication: Ankylosing spondylitis
     Dosage: HUMIRA 40MG/0.4ML , SOLUTION FOR INJECTION IN PRE-FILLED PEN
     Dates: end: 20221007
  3. ACETAMINOPHEN\TRAMADOL HYDROCHLORIDE [Suspect]
     Active Substance: ACETAMINOPHEN\TRAMADOL HYDROCHLORIDE
     Indication: Ankylosing spondylitis
     Dosage: UNK

REACTIONS (17)
  - Ankylosing spondylitis [Recovering/Resolving]
  - Arthralgia [Recovering/Resolving]
  - Muscle rigidity [Recovering/Resolving]
  - Arthritis [Recovering/Resolving]
  - Somnolence [Recovered/Resolved]
  - Urinary incontinence [Recovered/Resolved]
  - Irritable bowel syndrome [Recovering/Resolving]
  - Gastritis [Recovering/Resolving]
  - Abdominal discomfort [Recovering/Resolving]
  - Inflammation [Recovering/Resolving]
  - Gastrooesophageal reflux disease [Recovering/Resolving]
  - Hypokinesia [Recovering/Resolving]
  - Anxiety [Unknown]
  - Neck pain [Recovering/Resolving]
  - Diarrhoea [Recovering/Resolving]
  - Nausea [Recovering/Resolving]
  - Migraine [Recovered/Resolved]

NARRATIVE: CASE EVENT DATE: 20220101
